FAERS Safety Report 8448136-2 (Version None)
Quarter: 2012Q2

REPORT INFORMATION
  Report Type: 
  Country: None (occurrence: None)
  Receive Date: 20120531
  Receipt Date: 20120508
  Transmission Date: 20120825
  Serious: Yes (Life-Threatening, Hospitalization)
  Sender: FDA-Public Use
  Company Number: 2011029567

PATIENT
  Sex: Male
  Weight: 65 kg

DRUGS (32)
  1. PRIVIGEN [Suspect]
  2. MESTINON [Concomitant]
  3. CALCIUM VITAMIN D (OYSTER SHELL CALCIUM WITH VITAMIN D/91746301/) [Concomitant]
  4. PRIVIGEN [Suspect]
  5. PRIVIGEN [Suspect]
  6. BENTYL IDICYCLOVERINE HYDROCHLORIDE) [Concomitant]
  7. SOLU-MEDROL [Concomitant]
  8. VITAMIN D [Concomitant]
  9. ZOSYN [Suspect]
     Dosage: 4.5 MG TID
  10. FERROUS SULFATE TAB [Concomitant]
  11. ZANTAC [Concomitant]
  12. PRIVIGEN [Suspect]
  13. LOVENOX [Suspect]
     Indication: MYASTHENIA GRAVIS
     Dosage: 30 MG/QD, SUBCUTANEOUS
     Route: 058
     Dates: start: 20110703
  14. FLONASE [Concomitant]
  15. KAOPECTATE (KAOPEPTADE) [Concomitant]
  16. FLOMAX [Concomitant]
  17. NOVOLIN R [Concomitant]
  18. THERAGRAN M (THERAGRAN-M) [Concomitant]
  19. PROTONIX [Concomitant]
  20. ASPIRIN [Concomitant]
  21. NEUTRA-PHOS (NEUTRA-PHOS) [Concomitant]
  22. PRIVIGEN [Suspect]
     Indication: MYASTHENIA GRAVIS
     Dosage: 400 MG/KG,20G,30 GM, DAY 1:30 GM DAY 2, 20 GM DAY 3, 40 GM DAY, 40 GM DAY 4, 35 GM, DAY 5, INTRAVEN
     Route: 042
     Dates: start: 20110703, end: 20110707
  23. PRIVIGEN [Suspect]
     Indication: MYASTHENIA GRAVIS
     Dosage: 400 MG/KG,20G,30 GM, DAY 1:30 GM DAY 2, 20 GM DAY 3, 40 GM DAY, 40 GM DAY 4, 35 GM, DAY 5, INTRAVEN
     Route: 042
     Dates: start: 20110704, end: 20110704
  24. PRIVIGEN [Suspect]
     Indication: MYASTHENIA GRAVIS
     Dosage: 400 MG/KG,20G,30 GM, DAY 1:30 GM DAY 2, 20 GM DAY 3, 40 GM DAY, 40 GM DAY 4, 35 GM, DAY 5, INTRAVEN
     Route: 042
     Dates: start: 20110703, end: 20110707
  25. PRIVIGEN [Suspect]
     Indication: MYASTHENIA GRAVIS
     Dosage: 400 MG/KG,20G,30 GM, DAY 1:30 GM DAY 2, 20 GM DAY 3, 40 GM DAY, 40 GM DAY 4, 35 GM, DAY 5, INTRAVEN
     Route: 042
     Dates: start: 20110705, end: 20110705
  26. PRIVIGEN [Suspect]
     Indication: MYASTHENIA GRAVIS
     Dosage: 400 MG/KG,20G,30 GM, DAY 1:30 GM DAY 2, 20 GM DAY 3, 40 GM DAY, 40 GM DAY 4, 35 GM, DAY 5, INTRAVEN
     Route: 042
     Dates: start: 20110706, end: 20110706
  27. PRIVIGEN [Suspect]
     Indication: MYASTHENIA GRAVIS
     Dosage: 400 MG/KG,20G,30 GM, DAY 1:30 GM DAY 2, 20 GM DAY 3, 40 GM DAY, 40 GM DAY 4, 35 GM, DAY 5, INTRAVEN
     Route: 042
     Dates: start: 20110707, end: 20110707
  28. ZOCOR [Concomitant]
  29. NPH INSULIN [Concomitant]
  30. PRIVIGEN [Suspect]
  31. COREG [Concomitant]
  32. KLOR-KON (POTASSIUM CHLORIDE) [Concomitant]

REACTIONS (5)
  - THROMBOCYTOPENIA [None]
  - HAEMOLYSIS [None]
  - HAEMOLYTIC ANAEMIA [None]
  - DIARRHOEA [None]
  - RENAL ATROPHY [None]
